FAERS Safety Report 4312322-3 (Version None)
Quarter: 2004Q1

REPORT INFORMATION
  Report Type: 
  Country: None (occurrence: None)
  Receive Date: 20040305
  Receipt Date: 20040224
  Transmission Date: 20041129
  Serious: Yes (Disabling, Congenital Anomaly)
  Sender: FDA-Public Use
  Company Number: FR-GLAXOSMITHKLINE-B0325048A

PATIENT

DRUGS (2)
  1. DEROXAT [Suspect]
     Indication: DEPRESSION
     Dosage: 20MG PER DAY
  2. SURMONTIL [Suspect]
     Indication: DEPRESSION
     Dosage: 25MG PER DAY

REACTIONS (14)
  - CARDIAC FAILURE [None]
  - CIRCULATORY FAILURE NEONATAL [None]
  - CYSTIC FIBROSIS PANCREATIC [None]
  - DRUG EXPOSURE DURING PREGNANCY [None]
  - ENCEPHALOPATHY [None]
  - ENCEPHALOPATHY NEONATAL [None]
  - ENTEROCOLITIS [None]
  - FACIAL DYSMORPHISM [None]
  - MITRAL VALVE INCOMPETENCE [None]
  - NEONATAL CARDIAC FAILURE [None]
  - NEONATAL HYPOTENSION [None]
  - PREMATURE BABY [None]
  - RENAL FAILURE ACUTE [None]
  - RENAL FAILURE NEONATAL [None]
